FAERS Safety Report 13048531 (Version 1)
Quarter: 2016Q4

REPORT INFORMATION
  Report Type: Spontaneous
  Country: US (occurrence: US)
  Receive Date: 20161220
  Receipt Date: 20161220
  Transmission Date: 20170207
  Serious: Yes (Other)
  Sender: FDA-Public Use
  Company Number: US-AMGEN-USASP2016178886

PATIENT
  Age: 82 Year
  Sex: Male

DRUGS (2)
  1. ENBREL [Suspect]
     Active Substance: ETANERCEPT
     Indication: PRODUCT USED FOR UNKNOWN INDICATION
     Dosage: 50 MG, Q2WK
     Route: 058
  2. LUPRON [Concomitant]
     Active Substance: LEUPROLIDE ACETATE
     Dosage: UNK

REACTIONS (3)
  - Diarrhoea [Recovering/Resolving]
  - Psoriatic arthropathy [Unknown]
  - Prostate cancer recurrent [Unknown]

NARRATIVE: CASE EVENT DATE: 2016
